FAERS Safety Report 9490505 (Version 1)
Quarter: 2013Q3

REPORT INFORMATION
  Report Type: Spontaneous
  Country: GB (occurrence: GB)
  Receive Date: 20130830
  Receipt Date: 20130830
  Transmission Date: 20140515
  Serious: Yes (Other)
  Sender: FDA-Public Use
  Company Number: GB-ACCORD-019079

PATIENT
  Sex: Female

DRUGS (2)
  1. SIMVASTATIN [Suspect]
     Indication: BLOOD CHOLESTEROL INCREASED
     Dosage: STRENGTH 20MG
     Route: 065
     Dates: start: 201305
  2. RISEDRONATE SODIUM [Concomitant]

REACTIONS (5)
  - Liver injury [Unknown]
  - Pain in extremity [Unknown]
  - Back pain [Unknown]
  - Groin pain [Unknown]
  - Gait disturbance [Unknown]
